FAERS Safety Report 5679193-4 (Version None)
Quarter: 2008Q1

REPORT INFORMATION
  Report Type: 
  Country: None (occurrence: None)
  Receive Date: 20080325
  Receipt Date: 20080319
  Transmission Date: 20080703
  Serious: Yes (Death)
  Sender: FDA-Public Use
  Company Number: US-ASTRAZENECA-2007UW12512

PATIENT
  Age: 21196 Day
  Sex: Male
  Weight: 75 kg

DRUGS (2)
  1. SEROQUEL [Suspect]
     Indication: DEPRESSION
     Dosage: 25 TO 100 MG
     Route: 048
     Dates: start: 20060301, end: 20060901
  2. SEROQUEL [Suspect]
     Indication: POST-TRAUMATIC STRESS DISORDER
     Dosage: 25 TO 100 MG
     Route: 048
     Dates: start: 20060301, end: 20060901

REACTIONS (2)
  - ARTERIOSCLEROSIS [None]
  - TYPE 2 DIABETES MELLITUS [None]
